FAERS Safety Report 21224860 (Version 1)
Quarter: 2022Q3

REPORT INFORMATION
  Report Type: Spontaneous
  Country: US (occurrence: US)
  Receive Date: 20220817
  Receipt Date: 20220817
  Transmission Date: 20221027
  Serious: No
  Sender: FDA-Public Use
  Company Number: US-OTSUKA-2021_028215

PATIENT
  Sex: Female

DRUGS (2)
  1. ABILIFY MAINTENA [Suspect]
     Active Substance: ARIPIPRAZOLE
     Indication: Bipolar I disorder
     Dosage: FIRST DOSE
     Route: 065
     Dates: start: 20210713
  2. ABILIFY MAINTENA [Suspect]
     Active Substance: ARIPIPRAZOLE
     Indication: Mania
     Dosage: SECOND DOSE
     Route: 065
     Dates: start: 20210810

REACTIONS (2)
  - Flat affect [Recovered/Resolved]
  - Product use in unapproved indication [Unknown]
